FAERS Safety Report 6614153-8 (Version None)
Quarter: 2010Q1

REPORT INFORMATION
  Report Type: 
  Country: None (occurrence: None)
  Receive Date: 20100304
  Receipt Date: 20100218
  Transmission Date: 20100710
  Serious: Yes (Hospitalization)
  Sender: FDA-Public Use
  Company Number: FR-JNJFOC-20100300494

PATIENT
  Sex: Male

DRUGS (10)
  1. IXPRIM [Suspect]
     Indication: ARTHRALGIA
     Route: 048
  2. LASILIX [Suspect]
     Indication: DRUG USE FOR UNKNOWN INDICATION
     Route: 048
  3. ALDACTONE [Suspect]
     Indication: DRUG USE FOR UNKNOWN INDICATION
     Route: 048
  4. COVERSYL [Suspect]
     Indication: DRUG USE FOR UNKNOWN INDICATION
     Route: 048
  5. SKENAN [Suspect]
     Indication: BACK PAIN
     Route: 048
  6. ESOMEPRAZOLE [Concomitant]
     Route: 065
  7. PREVISCAN (PENTOXIFYLLINE) [Concomitant]
     Route: 065
  8. CORTANCYL [Concomitant]
     Route: 065
  9. ALENDRONIC ACID [Concomitant]
     Route: 065
  10. CARDENSIEL [Concomitant]
     Route: 065

REACTIONS (6)
  - AGITATION [None]
  - CONFUSIONAL STATE [None]
  - DECREASED APPETITE [None]
  - RENAL FAILURE ACUTE [None]
  - SOMNOLENCE [None]
  - VOMITING [None]
